FAERS Safety Report 17307530 (Version 1)
Quarter: 2020Q1

REPORT INFORMATION
  Report Type: Spontaneous
  Country: US (occurrence: US)
  Receive Date: 20200123
  Receipt Date: 20200123
  Transmission Date: 20200409
  Serious: No
  Sender: FDA-Public Use
  Company Number: US-ASTRAZENECA-2020SE08076

PATIENT
  Age: 562 Day
  Sex: Male
  Weight: 10.4 kg

DRUGS (1)
  1. SYNAGIS [Suspect]
     Active Substance: PALIVIZUMAB
     Indication: ANTIVIRAL PROPHYLAXIS
     Dosage: 100MG/ML MONTHLY
     Route: 030
     Dates: start: 201910

REACTIONS (1)
  - Viral infection [Not Recovered/Not Resolved]

NARRATIVE: CASE EVENT DATE: 20200114
